FAERS Safety Report 12171518 (Version 3)
Quarter: 2016Q1

REPORT INFORMATION
  Report Type: Report from Study
  Country: US (occurrence: US)
  Receive Date: 20160311
  Receipt Date: 20160330
  Transmission Date: 20160526
  Serious: Yes (Death, Other)
  Sender: FDA-Public Use
  Company Number: US-GILEAD-2016-0202875

PATIENT
  Age: 71 Year
  Sex: Male

DRUGS (13)
  1. MULTIVITAMIN                       /07504101/ [Concomitant]
     Active Substance: VITAMINS
  2. SPIRONOLACTONE. [Concomitant]
     Active Substance: SPIRONOLACTONE
  3. ZETIA [Concomitant]
     Active Substance: EZETIMIBE
  4. ADVAIR HFA [Concomitant]
     Active Substance: FLUTICASONE PROPIONATE\SALMETEROL XINAFOATE
  5. LIPITOR [Concomitant]
     Active Substance: ATORVASTATIN CALCIUM
  6. PLAVIX [Concomitant]
     Active Substance: CLOPIDOGREL BISULFATE
  7. FLOMAX [Concomitant]
     Active Substance: TAMSULOSIN HYDROCHLORIDE
  8. AMBRISENTAN [Suspect]
     Active Substance: AMBRISENTAN
     Indication: PULMONARY HYPERTENSION
     Dosage: 10 MG, QD
     Route: 065
     Dates: start: 20140422, end: 20160202
  9. SILDENAFIL. [Concomitant]
     Active Substance: SILDENAFIL
  10. TORSEMIDE. [Concomitant]
     Active Substance: TORSEMIDE
  11. LANTUS [Concomitant]
     Active Substance: INSULIN GLARGINE
  12. HUMALOG [Concomitant]
     Active Substance: INSULIN LISPRO
  13. POTASSIUM [Concomitant]
     Active Substance: POTASSIUM

REACTIONS (3)
  - Cardiac failure [Fatal]
  - Renal failure [Fatal]
  - Fluid retention [Fatal]

NARRATIVE: CASE EVENT DATE: 20160212
